FAERS Safety Report 8477530-9 (Version None)
Quarter: 2012Q2

REPORT INFORMATION
  Report Type: 
  Country: None (occurrence: None)
  Receive Date: 20120629
  Receipt Date: 20120620
  Transmission Date: 20120825
  Serious: Yes (Death, Life-Threatening)
  Sender: FDA-Public Use
  Company Number: JP-MPIJNJ-2012-03083

PATIENT

DRUGS (19)
  1. VALACICLOVIR [Concomitant]
     Indication: MULTIPLE MYELOMA
     Dosage: 500 MG, UNK
     Route: 048
     Dates: start: 20120314
  2. AZOSEMIDE [Concomitant]
     Indication: RENAL FAILURE
     Dosage: 50 MG, UNK
     Dates: start: 20020103
  3. FUROSEMIDE [Concomitant]
     Indication: CARDIAC FAILURE
     Dosage: 40 MG, UNK
     Route: 048
     Dates: end: 20120416
  4. DEXAMETHASONE [Concomitant]
     Indication: MULTIPLE MYELOMA
     Dosage: 20 MG, UNK
     Route: 048
     Dates: start: 20120314
  5. TOLVAPTAN [Concomitant]
     Indication: CARDIAC FAILURE
     Dosage: 7.5 MG, UNK
     Route: 048
     Dates: start: 20120223
  6. DAIKENCHUTO [Concomitant]
     Dosage: 7.5 G, UNK
     Route: 048
     Dates: start: 20120228
  7. PURSENNID                          /00142207/ [Concomitant]
     Dosage: 12 MG, UNK
     Route: 048
     Dates: start: 20120111
  8. VELCADE [Suspect]
     Indication: MULTIPLE MYELOMA
     Dosage: 1.3 MG/M2, UNK
     Route: 042
     Dates: start: 20120316, end: 20120412
  9. VELCADE [Suspect]
     Indication: RENAL AMYLOIDOSIS
  10. CARVEDILOL [Concomitant]
     Indication: CARDIAC FAILURE
     Dosage: 2.5 G, UNK
     Route: 048
     Dates: start: 20120111
  11. EPLERENONE [Concomitant]
     Dosage: 50 MG, UNK
     Route: 048
     Dates: start: 20120218, end: 20120416
  12. TRICHLORMETHIAZIDE [Concomitant]
     Indication: CARDIAC FAILURE
     Dosage: 1 MG, UNK
     Route: 048
     Dates: start: 20120221, end: 20120416
  13. HUMAN ALBUMIN                      /01102501/ [Concomitant]
     Indication: RENAL FAILURE ACUTE
     Dosage: 25 G, UNK
     Dates: start: 20120223
  14. OMEPRAZOLE [Concomitant]
     Indication: GASTRIC ULCER
     Dosage: 20 MG, UNK
     Route: 048
     Dates: start: 20120323
  15. AMIODARONE HYDROCHLORIDE [Concomitant]
     Indication: CARDIAC AMYLOIDOSIS
     Dosage: UNK
     Route: 048
     Dates: start: 20020201, end: 20120416
  16. VELCADE [Suspect]
     Indication: CARDIAC AMYLOIDOSIS
  17. LOSARTAN POTASSIUM [Concomitant]
     Indication: RENAL FAILURE
     Dosage: 50 MG, UNK
     Route: 048
     Dates: start: 20120106
  18. AZOSEMIDE [Concomitant]
     Indication: CARDIAC FAILURE
  19. ZYVOX [Concomitant]
     Indication: STAPHYLOCOCCAL SEPSIS
     Dosage: 60 MG, BID
     Route: 048
     Dates: start: 20120402

REACTIONS (6)
  - CARDIAC FAILURE [None]
  - CARDIAC AMYLOIDOSIS [None]
  - LIVER DISORDER [None]
  - STAPHYLOCOCCAL SEPSIS [None]
  - PLATELET COUNT DECREASED [None]
  - DEPRESSED LEVEL OF CONSCIOUSNESS [None]
